FAERS Safety Report 9407993 (Version 1)
Quarter: 2013Q3

REPORT INFORMATION
  Report Type: Spontaneous
  Country: US (occurrence: None)
  Receive Date: 20130717
  Receipt Date: 20130717
  Transmission Date: 20140515
  Serious: Yes (Other)
  Sender: FDA-Public Use
  Company Number: None

PATIENT
  Age: 56 Year
  Sex: Female
  Weight: 84.37 kg

DRUGS (3)
  1. VICTOZA [Suspect]
     Route: 058
     Dates: start: 20130611, end: 20130625
  2. METFORMIN [Concomitant]
  3. LANTUS [Concomitant]

REACTIONS (1)
  - Visual acuity reduced [None]
